FAERS Safety Report 6503720-8 (Version None)
Quarter: 2009Q4

REPORT INFORMATION
  Report Type: 
  Country: None (occurrence: None)
  Receive Date: 20091217
  Receipt Date: 20091215
  Transmission Date: 20100525
  Serious: Yes (Death)
  Sender: FDA-Public Use
  Company Number: PHEH2009US17896

PATIENT

DRUGS (1)
  1. ZOMETA [Suspect]
     Dosage: 4 MG/5 ML

REACTIONS (1)
  - DEATH [None]
